FAERS Safety Report 5218332-6 (Version None)
Quarter: 2007Q1

REPORT INFORMATION
  Report Type: 
  Country: None (occurrence: None)
  Receive Date: 20070124
  Receipt Date: 20070102
  Transmission Date: 20070707
  Serious: Yes (Death, Hospitalization, Other)
  Sender: FDA-Public Use
  Company Number: US-PFIZER INC-2007001925

PATIENT
  Sex: Male

DRUGS (1)
  1. BEXTRA [Suspect]
     Indication: ARTHRITIS
     Route: 048
     Dates: start: 20030501, end: 20041001

REACTIONS (3)
  - PAIN [None]
  - SKIN DISORDER [None]
  - SUDDEN DEATH [None]
